FAERS Safety Report 10488485 (Version 1)
Quarter: 2014Q3

REPORT INFORMATION
  Report Type: Spontaneous
  Country: US (occurrence: None)
  Receive Date: 20140916
  Receipt Date: 20140916
  Transmission Date: 20150326
  Serious: Yes (Life-Threatening, Hospitalization, Other)
  Sender: FDA-Public Use
  Company Number: 003-234

PATIENT
  Age: 48 Year
  Sex: Male

DRUGS (1)
  1. CROFAB [Suspect]
     Active Substance: CROTALIDAE POLYVALENT IMMUNE FAB (OVINE)
     Indication: SNAKE BITE
     Dates: start: 201408

REACTIONS (10)
  - Prothrombin time prolonged [None]
  - Peripheral swelling [None]
  - Platelet count decreased [None]
  - Coagulopathy [None]
  - Blood fibrinogen decreased [None]
  - Ill-defined disorder [None]
  - Activated partial thromboplastin time prolonged [None]
  - Incision site haemorrhage [None]
  - Laboratory test abnormal [None]
  - International normalised ratio decreased [None]

NARRATIVE: CASE EVENT DATE: 201408
